FAERS Safety Report 9626782 (Version 2)
Quarter: 2013Q4

REPORT INFORMATION
  Report Type: Spontaneous
  Country: EG (occurrence: EG)
  Receive Date: 20131016
  Receipt Date: 20131118
  Transmission Date: 20140711
  Serious: Yes (Life-Threatening)
  Sender: FDA-Public Use
  Company Number: EG-GLAXOSMITHKLINE-B0929926A

PATIENT
  Age: 34 Year
  Sex: Male

DRUGS (2)
  1. VOTRIENT [Suspect]
     Indication: SARCOMA
     Dosage: 400MG TWICE PER DAY
     Route: 048
     Dates: start: 20131001, end: 20131009
  2. VOTRIENT [Suspect]
     Indication: SARCOMA
     Dosage: 400MG TWICE PER DAY
     Route: 048
     Dates: start: 20131013

REACTIONS (3)
  - Tumour pain [Recovered/Resolved]
  - Dyspnoea [Recovered/Resolved]
  - Influenza [Recovered/Resolved]
